FAERS Safety Report 7286041-8 (Version None)
Quarter: 2011Q1

REPORT INFORMATION
  Report Type: 
  Country: None (occurrence: None)
  Receive Date: 20110131
  Receipt Date: 20110113
  Transmission Date: 20110831
  Serious: Yes (Death, Hospitalization)
  Sender: FDA-Public Use
  Company Number: IMP_05271_2011

PATIENT
  Age: 20 Year
  Sex: Female

DRUGS (2)
  1. ALPRAZOLAM [Suspect]
     Indication: PRODUCT USED FOR UNKNOWN INDICATION
     Dosage: (DF ORAL)
     Route: 048
  2. CARBON MONOXIDE [Suspect]
     Dosage: (RESPIRATORY (INHALATION))
     Route: 055

REACTIONS (10)
  - VENTRICULAR EXTRASYSTOLES [None]
  - BLOOD BICARBONATE DECREASED [None]
  - HEART RATE INCREASED [None]
  - DRUG SCREEN POSITIVE [None]
  - POISONING [None]
  - ORAL DISORDER [None]
  - TONGUE DISORDER [None]
  - TROPONIN INCREASED [None]
  - ELECTROENCEPHALOGRAM ABNORMAL [None]
  - PNEUMONIA [None]
